FAERS Safety Report 6232938-7 (Version None)
Quarter: 2009Q2

REPORT INFORMATION
  Report Type: 
  Country: None (occurrence: None)
  Receive Date: 20090617
  Receipt Date: 20090609
  Transmission Date: 20091009
  Serious: Yes (Other)
  Sender: FDA-Public Use
  Company Number: RU-ASTRAZENECA-2009SE02440

PATIENT
  Age: 33 Year
  Sex: Female
  Weight: 70.4 kg

DRUGS (5)
  1. MARCAIN SPINAL HEAVY [Suspect]
     Indication: SPINAL ANAESTHESIA
     Route: 037
     Dates: start: 20090531, end: 20090531
  2. RELANIUM (DIAZEPAM) [Concomitant]
     Indication: DELIVERY
     Route: 030
     Dates: start: 20090529, end: 20090529
  3. BARALGIN (METAMIZOLE) [Concomitant]
     Indication: DELIVERY
     Route: 030
     Dates: start: 20090529, end: 20090529
  4. COCARBOXYLASE [Concomitant]
     Indication: DELIVERY
     Dates: start: 20090530, end: 20090530
  5. OXYTOCIN [Concomitant]
     Indication: DELIVERY
     Route: 042
     Dates: start: 20090530, end: 20090530

REACTIONS (3)
  - BLOOD PRESSURE DECREASED [None]
  - INTRA-UTERINE DEATH [None]
  - LOSS OF CONSCIOUSNESS [None]
